FAERS Safety Report 20838325 (Version 1)
Quarter: 2022Q2

REPORT INFORMATION
  Report Type: Spontaneous
  Country: CN (occurrence: None)
  Receive Date: 20220517
  Receipt Date: 20220517
  Transmission Date: 20220720
  Serious: Yes (Hospitalization)
  Sender: FDA-Public Use
  Company Number: 2022A184881

PATIENT
  Age: 16071 Day
  Sex: Female

DRUGS (1)
  1. OLAPARIB [Suspect]
     Active Substance: OLAPARIB
     Indication: Ill-defined disorder
     Route: 048
     Dates: start: 20220119, end: 20220425

REACTIONS (1)
  - Pernicious anaemia [Recovering/Resolving]

NARRATIVE: CASE EVENT DATE: 20220425
